FAERS Safety Report 15313522 (Version 1)
Quarter: 2018Q3

REPORT INFORMATION
  Report Type: Report from Study
  Country: US (occurrence: US)
  Receive Date: 20180824
  Receipt Date: 20180824
  Transmission Date: 20181010
  Serious: Yes (Other)
  Sender: FDA-Public Use
  Company Number: US-EMD SERONO-E2B_90050191

PATIENT
  Age: 34 Year
  Sex: Female

DRUGS (1)
  1. REBIF [Suspect]
     Active Substance: INTERFERON BETA-1A
     Indication: MULTIPLE SCLEROSIS
     Route: 058
     Dates: start: 20180702, end: 20180702

REACTIONS (14)
  - Disturbance in attention [Not Recovered/Not Resolved]
  - Asthenia [Not Recovered/Not Resolved]
  - Heart rate increased [Recovered/Resolved]
  - Dysarthria [Recovering/Resolving]
  - Cerebrovascular accident [Unknown]
  - Feeling jittery [Recovering/Resolving]
  - Aphasia [Not Recovered/Not Resolved]
  - Slow response to stimuli [Not Recovered/Not Resolved]
  - Feeling abnormal [Recovering/Resolving]
  - Flushing [Recovered/Resolved]
  - Disorientation [Not Recovered/Not Resolved]
  - Loss of consciousness [Unknown]
  - Feeling hot [Recovering/Resolving]
  - Headache [Recovered/Resolved]

NARRATIVE: CASE EVENT DATE: 20180702
